FAERS Safety Report 10017915 (Version 2)
Quarter: 2014Q1

REPORT INFORMATION
  Report Type: Spontaneous
  Country: US (occurrence: US)
  Receive Date: 20140318
  Receipt Date: 20140318
  Transmission Date: 20141002
  Serious: Yes (Other)
  Sender: FDA-Public Use
  Company Number: US-BRISTOL-MYERS SQUIBB COMPANY-18868000

PATIENT
  Age: 46 Year
  Sex: Male

DRUGS (9)
  1. ERBITUX SOLN FOR INF [Suspect]
     Indication: COLON CANCER METASTATIC
     Dosage: SOLN FOR INFUSION?LOT NUM:1200191?EXP DATE: -AUG2015
     Route: 042
     Dates: start: 20130403, end: 20130403
  2. LANTUS [Concomitant]
  3. HUMALOG [Concomitant]
  4. LIPITOR [Concomitant]
  5. ALOXI [Concomitant]
     Route: 042
     Dates: start: 20130403
  6. EMEND [Concomitant]
     Route: 042
     Dates: start: 20130403
  7. FAMOTIDINE [Concomitant]
     Route: 042
     Dates: start: 20130403
  8. IRINOTECAN [Concomitant]
     Dosage: OVER 90 MINUTES
     Route: 042
     Dates: start: 20130403
  9. FLUOROURACIL [Concomitant]
     Dosage: OVER 5 MIN
     Route: 042
     Dates: start: 20130403

REACTIONS (1)
  - Drug hypersensitivity [Recovered/Resolved]
